FAERS Safety Report 12987152 (Version 1)
Quarter: 2016Q4

REPORT INFORMATION
  Report Type: Spontaneous
  Country: FR (occurrence: FR)
  Receive Date: 20161130
  Receipt Date: 20161130
  Transmission Date: 20170207
  Serious: Yes (Other)
  Sender: FDA-Public Use
  Company Number: FR-TEVA-714693ROM

PATIENT
  Sex: Male

DRUGS (2)
  1. RISPERIDONE TEVA 2 MG [Suspect]
     Active Substance: RISPERIDONE
     Route: 048
  2. TERALITHE [Suspect]
     Active Substance: LITHIUM CARBONATE
     Dates: start: 201607

REACTIONS (4)
  - Derealisation [Unknown]
  - Abnormal behaviour [Unknown]
  - Hallucination [Unknown]
  - Impaired reasoning [Unknown]

NARRATIVE: CASE EVENT DATE: 2016
